FAERS Safety Report 26047445 (Version 1)
Quarter: 2025Q4

REPORT INFORMATION
  Report Type: Spontaneous
  Country: EU (occurrence: EU)
  Receive Date: 20251114
  Receipt Date: 20251114
  Transmission Date: 20260118
  Serious: Yes (Hospitalization)
  Sender: ABBVIE
  Company Number: None

PATIENT
  Age: 84 Year
  Sex: Male
  Weight: 64 kg

DRUGS (3)
  1. IMBRUVICA [Suspect]
     Active Substance: IBRUTINIB
     Indication: B-cell lymphoma
     Dosage: 560 MG FILM-COATED TABLETS, 30 TABLETS
     Route: 048
     Dates: start: 20241010, end: 20250923
  2. IMBRUVICA [Suspect]
     Active Substance: IBRUTINIB
     Indication: B-cell lymphoma
     Dosage: 560 MG FILM-COATED TABLETS, 30 TABLETS
     Route: 048
     Dates: start: 20230515, end: 20241010
  3. CYCLOPHOSPHAMIDE\DOXORUBICIN\PREDNISONE\RITUXIMAB\VINCRISTINE [Suspect]
     Active Substance: CYCLOPHOSPHAMIDE\DOXORUBICIN\PREDNISONE\RITUXIMAB\VINCRISTINE
     Indication: B-cell lymphoma
     Dosage: TIME INTERVAL: 1 CYCLICAL
     Route: 065
     Dates: start: 20211126, end: 20220311

REACTIONS (2)
  - Dilated cardiomyopathy [Not Recovered/Not Resolved]
  - Cardiac failure [Recovered/Resolved]

NARRATIVE: CASE EVENT DATE: 20250708
